FAERS Safety Report 8599124-7 (Version None)
Quarter: 2012Q3

REPORT INFORMATION
  Report Type: 
  Country: None (occurrence: None)
  Receive Date: 20120816
  Receipt Date: 19950519
  Transmission Date: 20120928
  Serious: Yes (Hospitalization)
  Sender: FDA-Public Use
  Company Number: US-ROCHE-1101508

PATIENT
  Sex: Female

DRUGS (6)
  1. HEPARIN [Concomitant]
     Dosage: 4700 UNITS IVP
     Route: 040
  2. NTG SL [Concomitant]
  3. ACTIVASE [Suspect]
     Indication: ACUTE MYOCARDIAL INFARCTION
     Dosage: IVP OVER 2 MIN
  4. HEPARIN [Concomitant]
     Route: 042
  5. ACTIVASE [Suspect]
     Dosage: OVER 30 MIN (60 CC/HR)
  6. ATROPINE [Concomitant]

REACTIONS (3)
  - CHEST PAIN [None]
  - NAUSEA [None]
  - VOMITING [None]
